FAERS Safety Report 7134488-2 (Version None)
Quarter: 2010Q4

REPORT INFORMATION
  Report Type: 
  Country: None (occurrence: None)
  Receive Date: 20101203
  Receipt Date: 20100611
  Transmission Date: 20110411
  Serious: Yes (Other)
  Sender: FDA-Public Use
  Company Number: AU-JNJFOC-20100604944

PATIENT
  Sex: Male

DRUGS (1)
  1. STELARA [Suspect]
     Indication: PSORIASIS
     Route: 058

REACTIONS (7)
  - ANXIETY [None]
  - ASTHMA [None]
  - DEPRESSION [None]
  - LOWER RESPIRATORY TRACT INFECTION [None]
  - MOOD ALTERED [None]
  - PSORIASIS [None]
  - WEIGHT DECREASED [None]
